FAERS Safety Report 22200157 (Version 1)
Quarter: 2023Q2

REPORT INFORMATION
  Report Type: Spontaneous
  Country: US (occurrence: US)
  Receive Date: 20230412
  Receipt Date: 20230412
  Transmission Date: 20230722
  Serious: No
  Sender: FDA-Public Use
  Company Number: US-ELI_LILLY_AND_COMPANY-US202304004063

PATIENT
  Age: 49 Year
  Sex: Male

DRUGS (5)
  1. MOUNJARO [Suspect]
     Active Substance: TIRZEPATIDE
     Indication: Type 2 diabetes mellitus
     Dosage: 5 MG, UNKNOWN
     Route: 058
  2. MOUNJARO [Suspect]
     Active Substance: TIRZEPATIDE
     Indication: Type 2 diabetes mellitus
     Dosage: UNK, UNK,UNKNOWN
     Route: 058
     Dates: start: 202301
  3. MOUNJARO [Suspect]
     Active Substance: TIRZEPATIDE
     Indication: Type 2 diabetes mellitus
     Dosage: UNK, UNK,UNKNOWN
     Route: 058
     Dates: start: 202301
  4. MOUNJARO [Suspect]
     Active Substance: TIRZEPATIDE
     Dosage: UNK, UNKNOWN
     Route: 058
     Dates: start: 202302
  5. MOUNJARO [Suspect]
     Active Substance: TIRZEPATIDE
     Dosage: UNK, UNKNOWN
     Route: 058
     Dates: start: 202302

REACTIONS (3)
  - Incorrect dose administered [Unknown]
  - Injection site bruising [Unknown]
  - Weight decreased [Unknown]

NARRATIVE: CASE EVENT DATE: 20230405
